FAERS Safety Report 4701971-6 (Version None)
Quarter: 2005Q2

REPORT INFORMATION
  Report Type: 
  Country: None (occurrence: None)
  Receive Date: 20050627
  Receipt Date: 20050616
  Transmission Date: 20051028
  Serious: Yes (Disabling, Other)
  Sender: FDA-Public Use
  Company Number: 2005090303

PATIENT
  Age: 65 Year
  Sex: Female
  Weight: 109.7705 kg

DRUGS (7)
  1. NEURONTIN [Suspect]
     Indication: DIABETIC NEUROPATHY
     Dosage: 900 MG (300 MG, 3 IN 1 D), ORAL
     Route: 048
  2. AMARYL [Concomitant]
  3. WARFARIN 9WARFARIN0 [Concomitant]
  4. GLUCOPHAGE [Concomitant]
  5. PRINZIDE [Concomitant]
  6. ATENOLO (ATENOLOL) [Concomitant]
  7. ACETYLSALICYLIC ACID SRT [Concomitant]

REACTIONS (7)
  - DISTURBANCE IN ATTENTION [None]
  - DRUG DOSE OMISSION [None]
  - FATIGUE [None]
  - HERPES ZOSTER [None]
  - HOSTILITY [None]
  - MEMORY IMPAIRMENT [None]
  - MOBILITY DECREASED [None]
